FAERS Safety Report 5013035-5 (Version None)
Quarter: 2006Q2

REPORT INFORMATION
  Report Type: 
  Country: None (occurrence: None)
  Receive Date: 20060530
  Receipt Date: 20060206
  Transmission Date: 20061013
  Serious: No
  Sender: FDA-Public Use
  Company Number: US-GLAXOSMITHKLINE-A0592506A

PATIENT
  Age: 77 Year
  Sex: Female
  Weight: 70 kg

DRUGS (6)
  1. WELLBUTRIN XL [Suspect]
     Indication: DRUG USE FOR UNKNOWN INDICATION
     Dosage: 300MG PER DAY
     Route: 048
     Dates: start: 20060201
  2. SYNTHROID [Concomitant]
  3. CORTEF [Concomitant]
  4. FOSAMAX [Concomitant]
  5. PREMARIN [Concomitant]
  6. COVERA-HS [Concomitant]

REACTIONS (1)
  - HEADACHE [None]
